FAERS Safety Report 24452331 (Version 1)
Quarter: 2024Q4

REPORT INFORMATION
  Report Type: Spontaneous
  Country: US (occurrence: US)
  Receive Date: 20241017
  Receipt Date: 20241017
  Transmission Date: 20250114
  Serious: No
  Sender: SANOFI AVENTIS
  Company Number: US-SA-2024SA239302

PATIENT
  Sex: Female
  Weight: 65.45 kg

DRUGS (19)
  1. DUPIXENT [Suspect]
     Active Substance: DUPILUMAB
     Indication: Asthma
     Dosage: 300 MG, QOW
     Route: 058
  2. ACETAMINOPHEN [Concomitant]
     Active Substance: ACETAMINOPHEN
  3. TAMSULOSIN HYDROCHLORIDE [Concomitant]
     Active Substance: TAMSULOSIN HYDROCHLORIDE
  4. BETAMETHASONE DIPROPIONATE [Concomitant]
     Active Substance: BETAMETHASONE DIPROPIONATE
  5. MONTELUKAST SODIUM [Concomitant]
     Active Substance: MONTELUKAST SODIUM
  6. ATENOLOL [Concomitant]
     Active Substance: ATENOLOL
  7. ASPIRIN [Concomitant]
     Active Substance: ASPIRIN
  8. ALPRAZOLAM [Concomitant]
     Active Substance: ALPRAZOLAM
  9. VITAMINS [Concomitant]
     Active Substance: VITAMINS
  10. CYCLOBENZAPRINE HYDROCHLORIDE [Concomitant]
     Active Substance: CYCLOBENZAPRINE HYDROCHLORIDE
  11. LORATADINE [Concomitant]
     Active Substance: LORATADINE
  12. ESCITALOPRAM OXALATE [Concomitant]
     Active Substance: ESCITALOPRAM OXALATE
  13. ALBUTEROL SULFATE [Concomitant]
     Active Substance: ALBUTEROL SULFATE
  14. TRAMADOL HCL [Concomitant]
     Active Substance: TRAMADOL HYDROCHLORIDE
  15. SIMVASTATIN [Concomitant]
     Active Substance: SIMVASTATIN
  16. SYMBICORT [Concomitant]
     Active Substance: BUDESONIDE\FORMOTEROL FUMARATE DIHYDRATE
  17. CYANOCOBALAMIN [Concomitant]
     Active Substance: CYANOCOBALAMIN
  18. CALCIUM PHOSPHATE\CHOLECALCIFEROL [Concomitant]
     Active Substance: CALCIUM PHOSPHATE\CHOLECALCIFEROL
  19. VITAFUSION VITAMIN D3 [Concomitant]

REACTIONS (3)
  - Abdominal discomfort [Unknown]
  - Accidental exposure to product [Unknown]
  - Exposure via skin contact [Unknown]
